FAERS Safety Report 5015497-6 (Version None)
Quarter: 2006Q2

REPORT INFORMATION
  Report Type: 
  Country: None (occurrence: None)
  Receive Date: 20060530
  Receipt Date: 20060530
  Transmission Date: 20061013
  Serious: Yes (Hospitalization)
  Sender: FDA-Public Use
  Company Number: None

PATIENT
  Sex: Male
  Weight: 20.4119 kg

DRUGS (2)
  1. CHILDREN'S BENADRYL - D  ALLERGY  AND SINUS PFIZER [Suspect]
     Indication: RHINORRHOEA
     Dosage: 1 TEASPOON PO [ONE TIME, ONE TEASPOON]
     Route: 048
     Dates: start: 20060526, end: 20060526
  2. CHILDREN'S BENADRYL - D  ALLERGY  AND SINUS PFIZER [Suspect]
     Indication: SEASONAL ALLERGY
     Dosage: 1 TEASPOON PO [ONE TIME, ONE TEASPOON]
     Route: 048
     Dates: start: 20060526, end: 20060526

REACTIONS (2)
  - CHEST PAIN [None]
  - HEART RATE INCREASED [None]
